FAERS Safety Report 4789087-4 (Version None)
Quarter: 2005Q4

REPORT INFORMATION
  Report Type: 
  Country: None (occurrence: None)
  Receive Date: 20051005
  Receipt Date: 20050920
  Transmission Date: 20060501
  Serious: Yes (Hospitalization, Disabling)
  Sender: FDA-Public Use
  Company Number: US-MERCK-0509USA03017

PATIENT
  Sex: Female
  Weight: 115 kg

DRUGS (4)
  1. VIOXX [Suspect]
     Indication: BACK PAIN
     Route: 048
     Dates: start: 20020101, end: 20030101
  2. VIOXX [Suspect]
     Route: 048
     Dates: start: 20040101
  3. VIOXX [Suspect]
     Indication: PROCEDURAL PAIN
     Route: 048
     Dates: start: 20020101, end: 20030101
  4. VIOXX [Suspect]
     Route: 048
     Dates: start: 20040101

REACTIONS (3)
  - CEREBROVASCULAR ACCIDENT [None]
  - DEPRESSION [None]
  - WEIGHT INCREASED [None]
